FAERS Safety Report 14656240 (Version 1)
Quarter: 2018Q1

REPORT INFORMATION
  Report Type: Report from Study
  Country: CA (occurrence: CA)
  Receive Date: 20180319
  Receipt Date: 20180319
  Transmission Date: 20180509
  Serious: Yes (Death, Hospitalization)
  Sender: FDA-Public Use
  Company Number: CA-JNJFOC-20180313258

PATIENT
  Age: 62 Year
  Sex: Male
  Weight: 125.6 kg

DRUGS (1)
  1. STELARA [Suspect]
     Active Substance: USTEKINUMAB
     Indication: PSORIASIS
     Route: 058
     Dates: start: 201002

REACTIONS (2)
  - Chronic obstructive pulmonary disease [Fatal]
  - Septic shock [Fatal]

NARRATIVE: CASE EVENT DATE: 20171226
